FAERS Safety Report 11163506 (Version 1)
Quarter: 2015Q2

REPORT INFORMATION
  Report Type: Spontaneous
  Country: US (occurrence: US)
  Receive Date: 20150604
  Receipt Date: 20150604
  Transmission Date: 20150821
  Serious: Yes (Hospitalization)
  Sender: FDA-Public Use
  Company Number: US-SA-2014SA161685

PATIENT
  Age: 54 Year
  Sex: Male

DRUGS (2)
  1. LANTUS SOLOSTAR [Suspect]
     Active Substance: INSULIN GLARGINE
     Indication: TYPE 1 DIABETES MELLITUS
     Dosage: THERAPY START DATE: 1 MONTH AGO DOSE:43 UNIT(S)
     Route: 065
     Dates: start: 201410
  2. SOLOSTAR [Concomitant]
     Active Substance: DEVICE

REACTIONS (4)
  - Hypoglycaemia [Unknown]
  - Hyperhidrosis [Unknown]
  - Hypoglycaemic seizure [Unknown]
  - Tremor [Unknown]

NARRATIVE: CASE EVENT DATE: 20141119
